FAERS Safety Report 6411325-2 (Version None)
Quarter: 2009Q4

REPORT INFORMATION
  Report Type: 
  Country: None (occurrence: None)
  Receive Date: 20091023
  Receipt Date: 20091013
  Transmission Date: 20100525
  Serious: Yes (Other)
  Sender: FDA-Public Use
  Company Number: US-PFIZER INC-2006145284

PATIENT
  Sex: Female
  Weight: 65 kg

DRUGS (1)
  1. DEPO-PROVERA [Suspect]
     Indication: CONTRACEPTION
     Dosage: UNK
     Route: 030
     Dates: start: 19960201, end: 20060117

REACTIONS (3)
  - BODY HEIGHT DECREASED [None]
  - OSTEOPOROSIS [None]
  - OSTEOPOROTIC FRACTURE [None]
